FAERS Safety Report 5045374-6 (Version None)
Quarter: 2006Q3

REPORT INFORMATION
  Report Type: 
  Country: None (occurrence: None)
  Receive Date: 20060707
  Receipt Date: 20030501
  Transmission Date: 20061208
  Serious: No
  Sender: FDA-Public Use
  Company Number: US-GLAXOSMITHKLINE-A0607342A

PATIENT
  Sex: Female
  Weight: 81.8 kg

DRUGS (1)
  1. LOTRONEX [Suspect]
     Indication: DRUG USE FOR UNKNOWN INDICATION
     Route: 048

REACTIONS (6)
  - BOWEL MOVEMENT IRREGULARITY [None]
  - CONSTIPATION [None]
  - DIVERTICULUM [None]
  - GASTROINTESTINAL INJURY [None]
  - GASTROINTESTINAL PAIN [None]
  - IRRITABLE BOWEL SYNDROME [None]
